FAERS Safety Report 4999299-2 (Version None)
Quarter: 2006Q2

REPORT INFORMATION
  Report Type: 
  Country: None (occurrence: None)
  Receive Date: 20060509
  Receipt Date: 20060509
  Transmission Date: 20061013
  Serious: Yes (Death)
  Sender: FDA-Public Use
  Company Number: None

PATIENT
  Age: 28 Year
  Sex: Male
  Weight: 102.0593 kg

DRUGS (2)
  1. FENTANYL [Suspect]
     Indication: SELF-MEDICATION
     Dates: start: 20060318, end: 20060318
  2. CITALOPRAM HYDROBROMIDE [Suspect]

REACTIONS (5)
  - ACCIDENTAL OVERDOSE [None]
  - ALCOHOL POISONING [None]
  - DRUG TOXICITY [None]
  - LOSS OF CONSCIOUSNESS [None]
  - SELF-MEDICATION [None]
